FAERS Safety Report 4621268-2 (Version None)
Quarter: 2005Q1

REPORT INFORMATION
  Report Type: 
  Country: None (occurrence: None)
  Receive Date: 20050329
  Receipt Date: 20050317
  Transmission Date: 20050727
  Serious: Yes (Death)
  Sender: FDA-Public Use
  Company Number: US-JNJFOC-20050304866

PATIENT
  Age: 84 Year
  Sex: Male

DRUGS (4)
  1. REOPRO [Suspect]
     Route: 042
  2. REOPRO [Suspect]
     Route: 042
  3. HEPARIN [Concomitant]
  4. PLAVIX [Concomitant]

REACTIONS (1)
  - RETROPERITONEAL HAEMORRHAGE [None]
